FAERS Safety Report 7495447-3 (Version None)
Quarter: 2011Q2

REPORT INFORMATION
  Report Type: 
  Country: None (occurrence: None)
  Receive Date: 20110523
  Receipt Date: 20110507
  Transmission Date: 20111010
  Serious: No
  Sender: FDA-Public Use
  Company Number: US-TYCO HEALTHCARE/MALLINCKRODT-T201100943

PATIENT
  Age: 66 Year
  Sex: Female
  Weight: 70.295 kg

DRUGS (8)
  1. AMBIEN [Concomitant]
     Indication: INSOMNIA
  2. ALBUTEROL [Concomitant]
     Indication: ASTHMA
  3. FENTANYL-100 [Suspect]
     Indication: FIBROMYALGIA
  4. DIAZEPAM [Concomitant]
     Indication: ANXIETY
  5. SYMBICORT [Concomitant]
     Indication: ASTHMA
  6. PERCOCET [Concomitant]
     Dosage: 7.5/325 MG QID
     Route: 048
  7. PROZAC                             /00724401/ [Concomitant]
     Indication: DEPRESSION
  8. FENTANYL-100 [Suspect]
     Indication: PAIN
     Dosage: 50 UG/HR EVERY TWO DAYS
     Route: 062
     Dates: start: 20110401

REACTIONS (1)
  - DRUG INEFFECTIVE [None]
